FAERS Safety Report 9339469 (Version 3)
Quarter: 2013Q4

REPORT INFORMATION
  Report Type: Spontaneous
  Country: FR (occurrence: FR)
  Receive Date: 20130610
  Receipt Date: 20131008
  Transmission Date: 20140711
  Serious: Yes (Death)
  Sender: FDA-Public Use
  Company Number: FR-SANOFI-AVENTIS-2013SA019896

PATIENT
  Age: 37 Year
  Sex: Male
  Weight: 53 kg

DRUGS (19)
  1. TELFAST [Suspect]
     Indication: PRODUCT USED FOR UNKNOWN INDICATION
     Route: 048
  2. TERCIAN [Suspect]
     Indication: PRODUCT USED FOR UNKNOWN INDICATION
     Dosage: DOSE:1 UNIT(S)
     Route: 048
     Dates: start: 20060607, end: 20120701
  3. TERCIAN [Suspect]
     Indication: PRODUCT USED FOR UNKNOWN INDICATION
     Dosage: DOSE:2 UNIT(S)
     Route: 048
     Dates: start: 20120702, end: 20120717
  4. TERCIAN [Suspect]
     Indication: PRODUCT USED FOR UNKNOWN INDICATION
     Route: 048
     Dates: start: 20121128, end: 20121214
  5. SERETIDE [Suspect]
     Indication: ASTHMA
     Dosage: ROUTE: RESPIRATORY
     Dates: end: 201212
  6. LEXOMIL [Suspect]
     Indication: PRODUCT USED FOR UNKNOWN INDICATION
     Route: 048
  7. LAROXYL [Suspect]
     Indication: PRODUCT USED FOR UNKNOWN INDICATION
     Route: 048
     Dates: start: 20120613
  8. LAROXYL [Suspect]
     Indication: PRODUCT USED FOR UNKNOWN INDICATION
     Dosage: DOSE:1 UNIT(S)
     Route: 048
     Dates: start: 20121214
  9. AMISULPRIDE [Suspect]
     Indication: DEPRESSION
     Route: 048
     Dates: start: 20121214, end: 20121228
  10. CELESTAMINE [Concomitant]
     Indication: HYPERSENSITIVITY
     Route: 048
     Dates: end: 201212
  11. AIROMIR [Concomitant]
     Dosage: LONG STANDING TREATMENT
  12. ALOPEXY [Concomitant]
     Dosage: LONG STANDING TREATMENT
  13. THIOCOLCHICOSIDE [Concomitant]
     Dosage: IN THE EVENING ACCORDING TO THE PRESCRIPTION DATED ON 01-AUG-2012?STRENGTH: 4 MG
     Route: 048
  14. PIRACETAM [Concomitant]
     Dosage: LONG STANDING THERAPY
  15. PRAXINOR [Concomitant]
     Dosage: LONG STANDING TREATMENT
  16. ZOLPIDEM [Concomitant]
     Dosage: 0.5 TO 1 TABLET IN THE EVENING ACCORDING TO A PRESCRIPTION FOR 2 WEEKS DATED ON 01-AUG-2012
     Route: 048
  17. NOCTAMIDE [Concomitant]
     Dates: start: 20120607
  18. THERALENE [Concomitant]
     Dosage: IN THE EVENING
     Dates: start: 20120613
  19. ALPRAZOLAM [Concomitant]
     Dates: start: 20120717

REACTIONS (2)
  - Acute pulmonary oedema [Fatal]
  - Myocardial infarction [Fatal]
